FAERS Safety Report 9406045 (Version 2)
Quarter: 2013Q3

REPORT INFORMATION
  Report Type: Spontaneous
  Country: JP (occurrence: JP)
  Receive Date: 20130717
  Receipt Date: 20130726
  Transmission Date: 20140515
  Serious: Yes (Other)
  Sender: FDA-Public Use
  Company Number: JP-ASTRAZENECA-2013SE52194

PATIENT
  Age: 70 Year
  Sex: Male

DRUGS (4)
  1. CRESTOR [Suspect]
     Indication: HYPERCHOLESTEROLAEMIA
     Route: 048
     Dates: start: 2011, end: 2013
  2. MICARDIS [Concomitant]
     Dosage: DOSE UNKNOWN
     Route: 065
  3. AMLODIPINE [Concomitant]
     Dosage: DOSE UNKNOWN
     Route: 065
  4. ZYLORIC [Concomitant]
     Dosage: DOSE UNKNOWN
     Route: 065

REACTIONS (5)
  - Blood creatinine increased [Recovering/Resolving]
  - Blood creatine phosphokinase increased [Recovering/Resolving]
  - Back pain [Unknown]
  - Chromaturia [Unknown]
  - Aspartate aminotransferase increased [Recovering/Resolving]
